FAERS Safety Report 7791746-6 (Version None)
Quarter: 2011Q4

REPORT INFORMATION
  Report Type: 
  Country: None (occurrence: None)
  Receive Date: 20111003
  Receipt Date: 20110926
  Transmission Date: 20120403
  Serious: No
  Sender: FDA-Public Use
  Company Number: US-PFIZER INC-2011229266

PATIENT
  Sex: Male
  Weight: 63.4 kg

DRUGS (1)
  1. CHILDREN'S ADVIL COLD [Suspect]
     Indication: PYREXIA
     Dosage: UNK, AS NEEDED
     Route: 048
     Dates: end: 20110919

REACTIONS (1)
  - RASH GENERALISED [None]
